FAERS Safety Report 7641085-9 (Version None)
Quarter: 2011Q3

REPORT INFORMATION
  Report Type: 
  Country: None (occurrence: None)
  Receive Date: 20110727
  Receipt Date: 20110727
  Transmission Date: 20111222
  Serious: Yes (Other)
  Sender: FDA-Public Use
  Company Number: None

PATIENT
  Age: 77 Year
  Sex: Male
  Weight: 75 kg

DRUGS (4)
  1. RIVASTIGMINE [Suspect]
  2. METOCLOPRAMIDE [Suspect]
  3. EXELON [Concomitant]
  4. PROSTIGMIN BROMIDE [Suspect]

REACTIONS (2)
  - DYSTONIA [None]
  - UNRESPONSIVE TO STIMULI [None]
